FAERS Safety Report 19750205 (Version 1)
Quarter: 2021Q3

REPORT INFORMATION
  Report Type: Spontaneous
  Country: US (occurrence: US)
  Receive Date: 20210824
  Receipt Date: 20210824
  Transmission Date: 20211014
  Serious: Yes (Hospitalization)
  Sender: FDA-Public Use
  Company Number: None

PATIENT
  Age: 78 Year
  Sex: Male

DRUGS (1)
  1. REVLIMID [Suspect]
     Active Substance: LENALIDOMIDE
     Indication: PLASMA CELL MYELOMA
     Route: 048
     Dates: start: 20210406

REACTIONS (6)
  - Dizziness [None]
  - Balance disorder [None]
  - Fall [None]
  - Head injury [None]
  - Therapy interrupted [None]
  - Cholecystitis acute [None]

NARRATIVE: CASE EVENT DATE: 20210821
